FAERS Safety Report 9998566 (Version 1)
Quarter: 2014Q1

REPORT INFORMATION
  Report Type: Spontaneous
  Country: US (occurrence: US)
  Receive Date: 20140312
  Receipt Date: 20140312
  Transmission Date: 20141002
  Serious: No
  Sender: FDA-Public Use
  Company Number: US-BIOGENIDEC-2014BI018870

PATIENT
  Sex: Female
  Weight: 90 kg

DRUGS (6)
  1. TECFIDERA [Suspect]
     Indication: MULTIPLE SCLEROSIS
     Route: 048
     Dates: start: 201308
  2. PENTOXIFYLLINE [Concomitant]
  3. LEVOTHYROXIN [Concomitant]
  4. LISINOPRIL/HCT [Concomitant]
  5. CYCLOBENZAPRIL [Concomitant]
  6. CALICIUM + D [Concomitant]

REACTIONS (1)
  - Depression [Unknown]
